FAERS Safety Report 15432745 (Version 1)
Quarter: 2018Q3

REPORT INFORMATION
  Report Type: Report from Study
  Country: CO (occurrence: CO)
  Receive Date: 20180927
  Receipt Date: 20180927
  Transmission Date: 20181010
  Serious: Yes (Hospitalization, Other)
  Sender: FDA-Public Use
  Company Number: CO-BRISTOL-MYERS SQUIBB COMPANY-BMS-2018-088194

PATIENT
  Sex: Female

DRUGS (1)
  1. ABATACEPT [Suspect]
     Active Substance: ABATACEPT
     Indication: ARTHRITIS
     Dosage: 750 MG, UNK
     Route: 042
     Dates: start: 20170406

REACTIONS (3)
  - Haemorrhage [Unknown]
  - Cardiac disorder [Recovering/Resolving]
  - Urinary tract disorder [Unknown]
